FAERS Safety Report 7431330-7 (Version None)
Quarter: 2011Q2

REPORT INFORMATION
  Report Type: 
  Country: None (occurrence: None)
  Receive Date: 20110421
  Receipt Date: 20110122
  Transmission Date: 20111010
  Serious: No
  Sender: FDA-Public Use
  Company Number: US-TEVA-264612USA

PATIENT
  Sex: Female
  Weight: 40.86 kg

DRUGS (2)
  1. ZITHROMAX [Concomitant]
     Indication: APHTHOUS STOMATITIS
     Dates: start: 20110110, end: 20110117
  2. PLAN B ONE-STEP [Suspect]
     Indication: POST COITAL CONTRACEPTION
     Dosage: 1.5 MILLIGRAM;
     Route: 048
     Dates: start: 20110118, end: 20110118

REACTIONS (1)
  - MENSTRUATION IRREGULAR [None]
